FAERS Safety Report 18502133 (Version 1)
Quarter: 2020Q4

REPORT INFORMATION
  Report Type: Spontaneous
  Country: IT (occurrence: IT)
  Receive Date: 20201113
  Receipt Date: 20201113
  Transmission Date: 20210114
  Serious: Yes (Hospitalization)
  Sender: FDA-Public Use
  Company Number: NVSC2020IT300426

PATIENT
  Age: 5 Year
  Sex: Female

DRUGS (2)
  1. CEFTRIAXONE. [Suspect]
     Active Substance: CEFTRIAXONE
     Indication: LYMPHADENOPATHY
     Dosage: 2 DF, QD
     Route: 048
     Dates: start: 20200202, end: 20200209
  2. CLINDAMYCIN. [Suspect]
     Active Substance: CLINDAMYCIN
     Indication: LYMPHADENOPATHY
     Dosage: 3 DF, QD
     Route: 048
     Dates: start: 20200202, end: 20200209

REACTIONS (1)
  - Rash maculo-papular [Recovering/Resolving]

NARRATIVE: CASE EVENT DATE: 20200209
